FAERS Safety Report 23100471 (Version 1)
Quarter: 2023Q4

REPORT INFORMATION
  Report Type: Spontaneous
  Country: US (occurrence: None)
  Receive Date: 20231020
  Receipt Date: 20231020
  Transmission Date: 20240110
  Serious: Yes (Hospitalization)
  Sender: FDA-Public Use
  Company Number: None

PATIENT
  Sex: Male

DRUGS (2)
  1. OXBRYTA [Suspect]
     Active Substance: VOXELOTOR
     Indication: Sickle cell disease
     Dosage: FREQUENCY : DAILY;?
     Route: 048
     Dates: start: 202004
  2. DEFERASIROX [Suspect]
     Active Substance: DEFERASIROX
     Indication: Mineral metabolism disorder
     Dosage: FREQUENCY : DAILY;?
     Route: 048

REACTIONS (1)
  - Sickle cell anaemia with crisis [None]
